FAERS Safety Report 8841622 (Version 3)
Quarter: 2012Q4

REPORT INFORMATION
  Report Type: Report from Study
  Country: AR (occurrence: AR)
  Receive Date: 20121016
  Receipt Date: 20121126
  Transmission Date: 20130627
  Serious: Yes (Other)
  Sender: FDA-Public Use
  Company Number: AR-009507513-1210ARG004999

PATIENT
  Age: 48 Year
  Sex: Female
  Weight: 61 kg

DRUGS (2)
  1. POSACONAZOLE [Suspect]
     Indication: AMERICAN TRYPANOSOMIASIS
     Dosage: 10 ml (4 mg), bid
     Route: 048
     Dates: start: 20120920, end: 20121009
  2. BENZNIDAZOLE [Suspect]
     Indication: AMERICAN TRYPANOSOMIASIS
     Dosage: 200 mg, bid
     Route: 048
     Dates: start: 20120920, end: 20121009

REACTIONS (1)
  - Hepatitis [Recovered/Resolved]
